FAERS Safety Report 4830938-2 (Version None)
Quarter: 2005Q4

REPORT INFORMATION
  Report Type: 
  Country: None (occurrence: None)
  Receive Date: 20051114
  Receipt Date: 20051031
  Transmission Date: 20060501
  Serious: Yes (Other)
  Sender: FDA-Public Use
  Company Number: 2005151227

PATIENT
  Age: 39 Year
  Sex: Female

DRUGS (5)
  1. HYDROCORTISONE SODIUM SUCCINATE [Suspect]
     Indication: ILL-DEFINED DISORDER
     Dosage: 200 MG (200 MG, 1 IN 1 D), INTRAVENOUS
     Route: 042
  2. PREDNISONE [Concomitant]
  3. AMINOPHYLLINE (AMINIOPHYLLINE) [Concomitant]
  4. ALL OTHER THERAPEUTIC PRODUCTS (ALL OTHER THERAPEUTICS PRODUCTS) [Concomitant]
  5. ANTIBIOTICS (ANTIBIOTICS) [Concomitant]

REACTIONS (1)
  - HYPERSENSITIVITY [None]
